FAERS Safety Report 17597690 (Version 2)
Quarter: 2020Q2

REPORT INFORMATION
  Report Type: Spontaneous
  Country: BR (occurrence: BR)
  Receive Date: 20200330
  Receipt Date: 20200511
  Transmission Date: 20200713
  Serious: Yes (Life-Threatening, Hospitalization, Other)
  Sender: FDA-Public Use
  Company Number: BR-AMGEN-BRASP2020050490

PATIENT
  Age: 54 Year
  Sex: Female
  Weight: 62.5 kg

DRUGS (15)
  1. GENUXAL [Suspect]
     Active Substance: CYCLOPHOSPHAMIDE
     Indication: INVASIVE DUCTAL BREAST CARCINOMA
     Dosage: 942 MILLIGRAM, CYCLICAL (D1 DILUTED IN 250 ML SF 0.9% AND HAD 30 MIN INFUSION)
     Route: 065
     Dates: start: 20191030, end: 20200113
  2. SODIUM CHLORIDE 0.9% [Concomitant]
     Active Substance: SODIUM CHLORIDE
     Dosage: 250 MILLILITER, CYCLICAL
     Dates: start: 20191031, end: 20200113
  3. DEXAMETHASONE. [Concomitant]
     Active Substance: DEXAMETHASONE
  4. MEROPENEM. [Concomitant]
     Active Substance: MEROPENEM
     Dosage: UNK
     Dates: start: 20200128
  5. GLUCOSE 5% BRAUN [Concomitant]
     Active Substance: DEXTROSE
     Dosage: 50 MILLILITER, CYCLICAL
     Dates: start: 20191031, end: 20200113
  6. NEULASTIM [Suspect]
     Active Substance: PEGFILGRASTIM
     Indication: PROPHYLAXIS
  7. FAULDOXO [Suspect]
     Active Substance: DOXORUBICIN HYDROCHLORIDE
     Indication: INVASIVE DUCTAL BREAST CARCINOMA
     Dosage: 94.2 MILLIGRAM, CYCLICAL (EVERY 15 DAYS; D1 DILUTED 50 ML GLUCOSE 5% AND 15 MIN INFUSION)
     Route: 065
     Dates: start: 20191030, end: 20200113
  8. FAULDOXO [Suspect]
     Active Substance: DOXORUBICIN HYDROCHLORIDE
     Indication: BREAST CANCER
     Dosage: 60 MILLIGRAM/SQ. METER
     Route: 065
     Dates: start: 20200112, end: 20200112
  9. GENUXAL [Suspect]
     Active Substance: CYCLOPHOSPHAMIDE
     Indication: BREAST CANCER
     Dosage: 600 MILLIGRAM/SQ. METER
     Route: 065
     Dates: start: 20200112, end: 20200112
  10. DOXORUBICIN [Concomitant]
     Active Substance: DOXORUBICIN
     Indication: BREAST CANCER
     Dosage: UNK
  11. PALONOSETRON. [Concomitant]
     Active Substance: PALONOSETRON HYDROCHLORIDE
  12. FILGRASTIM [Suspect]
     Active Substance: FILGRASTIM
     Indication: FEBRILE NEUTROPENIA
     Dosage: UNK
     Route: 065
     Dates: start: 202001
  13. LINEZOLID. [Concomitant]
     Active Substance: LINEZOLID
     Dosage: UNK
     Dates: start: 20200130
  14. NEULASTIM [Suspect]
     Active Substance: PEGFILGRASTIM
     Indication: INVASIVE DUCTAL BREAST CARCINOMA
     Dosage: 6 MILLIGRAM, CYCLICAL (EVERY 15 DAYS)
     Route: 065
     Dates: start: 20191031, end: 20200114
  15. CYCLOPHOSPHAMIDE. [Concomitant]
     Active Substance: CYCLOPHOSPHAMIDE
     Indication: BREAST CANCER
     Dosage: UNK

REACTIONS (4)
  - Febrile neutropenia [Recovered/Resolved]
  - Hypoxia [Unknown]
  - Pseudomonas infection [Unknown]
  - Dyspnoea [Unknown]

NARRATIVE: CASE EVENT DATE: 2020
